FAERS Safety Report 7442438-4 (Version None)
Quarter: 2011Q2

REPORT INFORMATION
  Report Type: 
  Country: None (occurrence: None)
  Receive Date: 20110428
  Receipt Date: 20110426
  Transmission Date: 20111010
  Serious: Yes (Hospitalization)
  Sender: FDA-Public Use
  Company Number: IT-SANOFI-AVENTIS-2011SA025348

PATIENT
  Age: 89 Year
  Sex: Male

DRUGS (3)
  1. LASIX [Suspect]
     Route: 048
     Dates: start: 20101210, end: 20110401
  2. TAREG [Suspect]
     Route: 048
     Dates: start: 20101008, end: 20110401
  3. CARDICOR [Suspect]
     Route: 048
     Dates: start: 20101105, end: 20110401

REACTIONS (3)
  - PRESYNCOPE [None]
  - BLOOD PRESSURE INCREASED [None]
  - EPISTAXIS [None]
